FAERS Safety Report 6371794-3 (Version None)
Quarter: 2009Q3

REPORT INFORMATION
  Report Type: 
  Country: None (occurrence: None)
  Receive Date: 20090918
  Receipt Date: 20090918
  Transmission Date: 20100115
  Serious: Yes (Other)
  Sender: FDA-Public Use
  Company Number: None

PATIENT
  Sex: Female
  Weight: 86.4 kg

DRUGS (2)
  1. CIPRO [Suspect]
     Indication: BRONCHITIS
     Dosage: 4 TIMES IN 2 YEAR PERIOD
  2. CIPRO [Suspect]
     Indication: PNEUMONIA
     Dosage: 4 TIMES IN 2 YEAR PERIOD

REACTIONS (4)
  - BLINDNESS [None]
  - MUSCLE RUPTURE [None]
  - ROTATOR CUFF SYNDROME [None]
  - TENDONITIS [None]
